FAERS Safety Report 5573115-2 (Version None)
Quarter: 2007Q4

REPORT INFORMATION
  Report Type: 
  Country: None (occurrence: None)
  Receive Date: 20071224
  Receipt Date: 20070626
  Transmission Date: 20080405
  Serious: Yes (Death)
  Sender: FDA-Public Use
  Company Number: CZ-ROCHE-537280

PATIENT
  Sex: Female
  Weight: 104 kg

DRUGS (1)
  1. XENICAL [Suspect]
     Indication: OBESITY
     Route: 048
     Dates: start: 20060612, end: 20070101

REACTIONS (1)
  - DEATH [None]
